FAERS Safety Report 23851587 (Version 1)
Quarter: 2024Q2

REPORT INFORMATION
  Report Type: Spontaneous
  Country: GB (occurrence: GB)
  Receive Date: 20240514
  Receipt Date: 20240514
  Transmission Date: 20240716
  Serious: Yes (Disabling)
  Sender: FDA-Public Use
  Company Number: None

PATIENT
  Age: 55 Year
  Sex: Female
  Weight: 87 kg

DRUGS (7)
  1. ZOLPIDEM [Suspect]
     Active Substance: ZOLPIDEM TARTRATE
     Route: 065
     Dates: start: 20240503
  2. ZOLPIDEM [Suspect]
     Active Substance: ZOLPIDEM TARTRATE
     Dosage: TAKE ONE AT NIGHT PRN
     Route: 065
     Dates: start: 20240502
  3. ARIPIPRAZOLE [Concomitant]
     Active Substance: ARIPIPRAZOLE
     Dosage: OD
     Dates: start: 20190227
  4. OLANZAPINE [Concomitant]
     Active Substance: OLANZAPINE
     Dosage: OD PRN AS NEEDED
     Dates: start: 20151202
  5. EPILIM [Concomitant]
     Active Substance: VALPROATE SODIUM
     Dosage: 1 AT NIGHT (TOTAL 900MG)
     Dates: start: 20170224
  6. CYCLIZINE [Concomitant]
     Active Substance: CYCLIZINE
     Dosage: TDS AS NEEDED FOR NAUSEA
     Dates: start: 20240501
  7. LEVOTHYROXINE [Concomitant]
     Active Substance: LEVOTHYROXINE\LEVOTHYROXINE SODIUM
     Dosage: ONE TO BE TAKEN DAILY
     Route: 065
     Dates: start: 20110707

REACTIONS (1)
  - Psychotic disorder [Recovered/Resolved]

NARRATIVE: CASE EVENT DATE: 20240503
